FAERS Safety Report 8533377-6 (Version None)
Quarter: 2012Q3

REPORT INFORMATION
  Report Type: 
  Country: None (occurrence: None)
  Receive Date: 20120724
  Receipt Date: 20120718
  Transmission Date: 20120928
  Serious: Yes (Other)
  Sender: FDA-Public Use
  Company Number: PHHY2012BR062797

PATIENT
  Age: 29 Year
  Sex: Female

DRUGS (6)
  1. RITALIN [Suspect]
     Indication: DISTURBANCE IN ATTENTION
     Dosage: 10 MG, BID
  2. TORADIAZIC [Concomitant]
     Indication: PAIN
     Dosage: 1 DF, OT, EVERY FOUR HOURS
  3. RITALIN LA [Suspect]
     Indication: DISTURBANCE IN ATTENTION
     Dosage: 10 MG, QD
  4. RITALIN [Suspect]
     Indication: DISTRACTIBILITY
  5. RITALIN LA [Suspect]
     Indication: DISTRACTIBILITY
     Dosage: 20 MG, QD
  6. TRAMADOL HYDROCHLORIDE [Concomitant]
     Indication: PAIN
     Dosage: UNK UKN, UNK

REACTIONS (6)
  - WRONG TECHNIQUE IN DRUG USAGE PROCESS [None]
  - PAIN [None]
  - DRUG INEFFECTIVE [None]
  - SOMNOLENCE [None]
  - LAZINESS [None]
  - DEPRESSED MOOD [None]
